FAERS Safety Report 25610191 (Version 1)
Quarter: 2025Q3

REPORT INFORMATION
  Report Type: Spontaneous
  Country: US (occurrence: US)
  Receive Date: 20250728
  Receipt Date: 20250728
  Transmission Date: 20251020
  Serious: No
  Sender: SAREPTA THERAPEUTICS
  Company Number: US-SAREPTA THERAPEUTICS INC.-SRP2024-005416

PATIENT
  Age: 15 Year
  Sex: Male
  Weight: 57.59 kg

DRUGS (3)
  1. AMONDYS 45 [Suspect]
     Active Substance: CASIMERSEN
     Indication: Duchenne muscular dystrophy
     Dates: end: 20241212
  2. AMONDYS 45 [Suspect]
     Active Substance: CASIMERSEN
     Dates: start: 20241230
  3. PREDNISONE [Concomitant]
     Active Substance: PREDNISONE
     Indication: Product used for unknown indication
     Dosage: 15 MILLIGRAM PER 5 ML, QD
     Route: 048
     Dates: start: 20211212

REACTIONS (3)
  - Intentional dose omission [Unknown]
  - Product dose omission issue [Unknown]
  - No adverse event [Unknown]

NARRATIVE: CASE EVENT DATE: 20241219
